FAERS Safety Report 6653623-3 (Version None)
Quarter: 2010Q1

REPORT INFORMATION
  Report Type: 
  Country: None (occurrence: None)
  Receive Date: 20100326
  Receipt Date: 20100315
  Transmission Date: 20100710
  Serious: Yes (Other)
  Sender: FDA-Public Use
  Company Number: US-JNJFOC-20100104217

PATIENT
  Sex: Female

DRUGS (1)
  1. REMICADE [Suspect]
     Indication: DRUG USE FOR UNKNOWN INDICATION
     Route: 042

REACTIONS (17)
  - APHASIA [None]
  - ARTHRALGIA [None]
  - ARTHROPATHY [None]
  - BEDRIDDEN [None]
  - COGNITIVE DISORDER [None]
  - CONFUSIONAL STATE [None]
  - DYSSTASIA [None]
  - FEELING OF DESPAIR [None]
  - GAIT DISTURBANCE [None]
  - HEADACHE [None]
  - INFUSION RELATED REACTION [None]
  - MUSCULOSKELETAL STIFFNESS [None]
  - PAIN [None]
  - PALPITATIONS [None]
  - PAROTITIS [None]
  - PRURITUS [None]
  - URTICARIA [None]
